FAERS Safety Report 14626214 (Version 1)
Quarter: 2018Q1

REPORT INFORMATION
  Report Type: Spontaneous
  Country: US (occurrence: US)
  Receive Date: 20180312
  Receipt Date: 20180312
  Transmission Date: 20180509
  Serious: Yes (Other)
  Sender: FDA-Public Use
  Company Number: US-ASTELLAS-2018US011419

PATIENT
  Age: 65 Year
  Sex: Male

DRUGS (2)
  1. TACROLIMUS. [Suspect]
     Active Substance: TACROLIMUS
     Indication: LIVER TRANSPLANT
     Dosage: UNK UNK, UNKNOWN FREQ.
     Route: 065
  2. MYCOPHENOLATE MOFETIL. [Concomitant]
     Active Substance: MYCOPHENOLATE MOFETIL
     Indication: LIVER TRANSPLANT
     Dosage: UNK UNK, UNKNOWN FREQ.
     Route: 065

REACTIONS (8)
  - Bile duct obstruction [Recovering/Resolving]
  - Biliary fistula [Unknown]
  - Haemobilia [Recovering/Resolving]
  - Haematochezia [Recovering/Resolving]
  - Portal vein occlusion [Recovering/Resolving]
  - Pancreatitis [Recovering/Resolving]
  - Large intestinal stenosis [Recovering/Resolving]
  - Vascular pseudoaneurysm [Recovering/Resolving]
